FAERS Safety Report 15944422 (Version 4)
Quarter: 2019Q1

REPORT INFORMATION
  Report Type: Spontaneous
  Country: US (occurrence: US)
  Receive Date: 20190211
  Receipt Date: 20190326
  Transmission Date: 20190417
  Serious: Yes (Hospitalization, Other)
  Sender: FDA-Public Use
  Company Number: US-SHIRE-US201904374

PATIENT
  Age: 58 Year
  Sex: Female

DRUGS (2)
  1. NATPARA (PARATHYROID HORMONE) [Suspect]
     Active Substance: PARATHYROID HORMONE
     Indication: HYPOPARATHYROIDISM
     Dosage: 75 MICROGRAM DAILY
     Route: 058
     Dates: start: 20180209
  2. NATPARA (PARATHYROID HORMONE) [Suspect]
     Active Substance: PARATHYROID HORMONE
     Dosage: 75 MICROGRAM DAILY
     Route: 058
     Dates: start: 20180101

REACTIONS (5)
  - Pericarditis [Recovered/Resolved]
  - Anosmia [Recovering/Resolving]
  - Systemic lupus erythematosus [Unknown]
  - Product packaging quantity issue [Unknown]
  - Blood calcium decreased [Recovered/Resolved]

NARRATIVE: CASE EVENT DATE: 20130220
